FAERS Safety Report 5284950-2 (Version None)
Quarter: 2007Q1

REPORT INFORMATION
  Report Type: 
  Country: None (occurrence: None)
  Receive Date: 20070328
  Receipt Date: 20070313
  Transmission Date: 20070707
  Serious: Yes (Hospitalization)
  Sender: FDA-Public Use
  Company Number: 2007EU000422

PATIENT
  Age: 1 Day
  Sex: Female
  Weight: 2.3 kg

DRUGS (4)
  1. TACROLIMUS [Suspect]
     Dosage: TRANSPLACENTAL
     Route: 064
  2. AZATHIOPRINE [Concomitant]
  3. ALFACALCIDOL (ALFACALCIDOL) [Concomitant]
  4. MULTIVITAMINS (ERGOCALCIFEROL, PANTENOL, NICOTINAMIDE, THIAMINE HYDROC [Concomitant]

REACTIONS (6)
  - DIARRHOEA [None]
  - HAEMOLYSIS [None]
  - HAEMOLYTIC ANAEMIA [None]
  - MYOCLONIC EPILEPSY [None]
  - NEONATAL DISORDER [None]
  - NERVOUS SYSTEM DISORDER [None]
